FAERS Safety Report 4300849-X (Version None)
Quarter: 2004Q1

REPORT INFORMATION
  Report Type: 
  Country: None (occurrence: None)
  Receive Date: 20040220
  Receipt Date: 20031112
  Transmission Date: 20041129
  Serious: Yes (Hospitalization)
  Sender: FDA-Public Use
  Company Number: WAES 0311FRA00039

PATIENT
  Age: 65 Year
  Sex: Female

DRUGS (10)
  1. ACARBOSE [Concomitant]
     Indication: DIABETES MELLITUS NON-INSULIN-DEPENDENT
     Route: 048
     Dates: start: 20021215
  2. ACEBUTOLOL [Concomitant]
     Indication: HYPERTENSION
     Route: 048
     Dates: start: 20021215
  3. ACEBUTOLOL [Concomitant]
     Indication: CORONARY ARTERY DISEASE
     Route: 048
     Dates: start: 20021215
  4. ALTHIAZIDE AND SPIRONOLACTONE [Concomitant]
     Indication: HYPERTENSION
     Route: 048
     Dates: start: 20021215
  5. AMLODIPINE BESYLATE [Concomitant]
     Indication: HYPERTENSION
     Route: 048
     Dates: start: 20020101
  6. CLOPIDOGREL BISULFATE [Concomitant]
     Indication: THROMBOSIS PROPHYLAXIS
     Route: 048
     Dates: start: 20021215
  7. FLUVASTATIN SODIUM [Concomitant]
     Route: 048
     Dates: start: 20021215
  8. COZAAR [Suspect]
     Indication: HYPERTENSION
     Route: 048
     Dates: start: 20021215
  9. NITROGLYCERIN [Concomitant]
     Indication: CORONARY ARTERY DISEASE
     Route: 061
     Dates: start: 20021215
  10. OMEPRAZOLE [Concomitant]
     Route: 048
     Dates: start: 20021215

REACTIONS (1)
  - PEMPHIGUS [None]
